FAERS Safety Report 8318377-3 (Version None)
Quarter: 2012Q2

REPORT INFORMATION
  Report Type: 
  Country: None (occurrence: None)
  Receive Date: 20120427
  Receipt Date: 20120420
  Transmission Date: 20120825
  Serious: Yes (Other)
  Sender: FDA-Public Use
  Company Number: US-UCBSA-055851

PATIENT
  Age: 23 Year
  Sex: Female

DRUGS (7)
  1. FOLIC ACID [Concomitant]
     Dosage: DAILY DOSE: 1MG
     Dates: start: 20100101
  2. ACYCLOVIR [Concomitant]
     Indication: GENITAL HERPES
  3. CIMZIA [Suspect]
     Dates: start: 20120325, end: 20120401
  4. PREDNISONE [Concomitant]
     Dosage: TAPERED; CURRENTLY 2.5MG ALMOST ENDED
  5. ASACOL [Concomitant]
     Dates: start: 20100101
  6. DILTIAZEM [Concomitant]
     Indication: ANAL FISSURE
     Dosage: 2%; ONE DOLLOP, THREE TIMES A DAY
  7. PREDNISONE [Concomitant]

REACTIONS (5)
  - SWOLLEN TONGUE [None]
  - OBSTRUCTIVE AIRWAYS DISORDER [None]
  - GINGIVAL BLEEDING [None]
  - ORAL MUCOSAL EXFOLIATION [None]
  - THROAT IRRITATION [None]
